FAERS Safety Report 8541125-9 (Version None)
Quarter: 2012Q3

REPORT INFORMATION
  Report Type: 
  Country: None (occurrence: None)
  Receive Date: 20120726
  Receipt Date: 20110822
  Transmission Date: 20120928
  Serious: No
  Sender: FDA-Public Use
  Company Number: US-ASTRAZENECA-2011SE50271

PATIENT
  Age: 53 Year
  Sex: Male
  Weight: 97.5 kg

DRUGS (4)
  1. SEROQUEL XR [Suspect]
     Dosage: TAKING ANOTHER DOSE
     Route: 048
  2. SEROQUEL XR [Suspect]
     Indication: DEPRESSION
     Route: 048
  3. CELEXA [Concomitant]
     Indication: DEPRESSION
     Route: 048
  4. SEROQUEL XR [Suspect]
     Route: 048
     Dates: start: 20110601

REACTIONS (5)
  - DRUG INEFFECTIVE [None]
  - INSOMNIA [None]
  - IMPRISONMENT [None]
  - MIDDLE INSOMNIA [None]
  - INCORRECT DOSE ADMINISTERED [None]
